FAERS Safety Report 11195848 (Version 1)
Quarter: 2015Q2

REPORT INFORMATION
  Report Type: Spontaneous
  Country: US (occurrence: US)
  Receive Date: 20150617
  Receipt Date: 20150617
  Transmission Date: 20150821
  Serious: No
  Sender: FDA-Public Use
  Company Number: US-BAYER-2015-346798

PATIENT
  Age: 39 Year
  Sex: Female
  Weight: 95.24 kg

DRUGS (2)
  1. ALEVE [Suspect]
     Active Substance: NAPROXEN SODIUM
     Indication: DYSMENORRHOEA
     Dosage: 1 DF, PRN
     Route: 048
     Dates: start: 201505, end: 201505
  2. ALEVE [Suspect]
     Active Substance: NAPROXEN SODIUM
     Indication: TENSION HEADACHE

REACTIONS (2)
  - Epigastric discomfort [Recovered/Resolved]
  - Drug ineffective [Unknown]

NARRATIVE: CASE EVENT DATE: 201505
